FAERS Safety Report 5698302-4 (Version None)
Quarter: 2008Q2

REPORT INFORMATION
  Report Type: 
  Country: None (occurrence: None)
  Receive Date: 20080408
  Receipt Date: 20080311
  Transmission Date: 20081010
  Serious: No
  Sender: FDA-Public Use
  Company Number: US-BOEHRINGER INGELHEIM GMBH, GERMANY-2008-BP-03783BP

PATIENT
  Age: 62 Year
  Sex: Male

DRUGS (7)
  1. ATROVENT HFA [Suspect]
     Indication: CHRONIC OBSTRUCTIVE PULMONARY DISEASE
     Route: 055
     Dates: start: 20050901
  2. COMBIVENT [Suspect]
     Indication: CHRONIC OBSTRUCTIVE PULMONARY DISEASE
     Route: 055
     Dates: start: 20050901
  3. FLOVENT [Concomitant]
  4. FEXOFENADINE [Concomitant]
  5. THEOPHYLLINE [Concomitant]
  6. NEXIUM [Concomitant]
  7. VYTORIN [Concomitant]

REACTIONS (2)
  - BREATH ALCOHOL TEST POSITIVE [None]
  - OVERDOSE [None]
